FAERS Safety Report 6543678-9 (Version None)
Quarter: 2010Q1

REPORT INFORMATION
  Report Type: 
  Country: None (occurrence: None)
  Receive Date: 20100120
  Receipt Date: 20100111
  Transmission Date: 20100710
  Serious: Yes (Death)
  Sender: FDA-Public Use
  Company Number: GXKR2007GB02445

PATIENT
  Age: 17 Year
  Sex: Female
  Weight: 57 kg

DRUGS (2)
  1. METRONIDAZOLE (NGX) [Suspect]
     Dosage: 2 G, UNK
     Route: 048
     Dates: start: 20070226, end: 20070226
  2. ALCOHOL [Interacting]

REACTIONS (10)
  - ATAXIA [None]
  - DEATH [None]
  - DRUG INTERACTION [None]
  - FLUSHING [None]
  - HEADACHE [None]
  - NAUSEA [None]
  - PALPITATIONS [None]
  - SOMNOLENCE [None]
  - TACHYCARDIA [None]
  - VISUAL IMPAIRMENT [None]
